FAERS Safety Report 9320069 (Version 1)
Quarter: 2013Q2

REPORT INFORMATION
  Report Type: Report from Study
  Country: US (occurrence: US)
  Receive Date: 20130530
  Receipt Date: 20130530
  Transmission Date: 20140414
  Serious: Yes (Other)
  Sender: FDA-Public Use
  Company Number: US-UCBSA-086956

PATIENT
  Sex: Male

DRUGS (2)
  1. CERTOLIZUMAB PEGOL [Suspect]
     Indication: INFLAMMATORY BOWEL DISEASE
  2. INFLIXIMAB [Concomitant]

REACTIONS (1)
  - Lupus-like syndrome [Unknown]
